FAERS Safety Report 15985067 (Version 3)
Quarter: 2019Q2

REPORT INFORMATION
  Report Type: Report from Study
  Country: JP (occurrence: JP)
  Receive Date: 20190220
  Receipt Date: 20190425
  Transmission Date: 20190711
  Serious: Yes (Death)
  Sender: FDA-Public Use
  Company Number: JP-PFIZER INC-2019071293

PATIENT
  Sex: Female

DRUGS (1)
  1. REVATIO [Suspect]
     Active Substance: SILDENAFIL CITRATE
     Indication: PULMONARY HYPERTENSION
     Dosage: 1 MG, 3X/DAY
     Dates: start: 20171124

REACTIONS (3)
  - Hypoplastic left heart syndrome [Fatal]
  - Congenital pulmonary artery anomaly [Fatal]
  - Condition aggravated [Fatal]

NARRATIVE: CASE EVENT DATE: 2017
